FAERS Safety Report 17872937 (Version 6)
Quarter: 2022Q3

REPORT INFORMATION
  Report Type: Spontaneous
  Country: US (occurrence: US)
  Receive Date: 20200608
  Receipt Date: 20220728
  Transmission Date: 20221027
  Serious: No
  Sender: FDA-Public Use
  Company Number: US-VERTEX PHARMACEUTICALS-2020-011945

PATIENT
  Sex: Female

DRUGS (18)
  1. TRIKAFTA [Suspect]
     Active Substance: ELEXACAFTOR\IVACAFTOR\TEZACAFTOR
     Indication: Cystic fibrosis
     Dosage: FREQ UNK
     Route: 048
     Dates: start: 20191217
  2. BENADRYL [Concomitant]
     Active Substance: DIPHENHYDRAMINE HYDROCHLORIDE
     Dosage: 50MG 4-6 HR
     Route: 048
  3. ALBUTEROL [Concomitant]
     Active Substance: ALBUTEROL
     Dosage: 1 VIAL, BID
  4. VENTOLIN HFA [Concomitant]
     Active Substance: ALBUTEROL SULFATE
     Dosage: 2 PUFFS, 2-4 TIMES DAILY
  5. SYMBICORT [Concomitant]
     Active Substance: BUDESONIDE\FORMOTEROL FUMARATE DIHYDRATE
     Dosage: 2 PUFFS, BID
  6. CALCIUM CARBONATE [Concomitant]
     Active Substance: CALCIUM CARBONATE
     Dosage: BID
     Route: 048
  7. PULMOZYME [Concomitant]
     Active Substance: DORNASE ALFA
     Dosage: UNK, QD
  8. ERGOCALCIFEROL [Concomitant]
     Active Substance: ERGOCALCIFEROL
     Route: 048
  9. FLUTICASONE [Concomitant]
     Active Substance: FLUTICASONE
     Dosage: 1 SPPRAY EACH NOSTRIL
  10. SODIUM CHLORIDE [Concomitant]
     Active Substance: SODIUM CHLORIDE
     Dosage: 4 MILLILITER, BID
  11. NUTREN 2.0 [Concomitant]
     Dosage: 120ML/HR
  12. SINGULAIR [Concomitant]
     Active Substance: MONTELUKAST SODIUM
     Dosage: 1 TAB
     Route: 048
  13. FISH OIL [Concomitant]
     Active Substance: FISH OIL
     Dosage: UNK, QD
     Route: 048
  14. ZOFRAN [Concomitant]
     Active Substance: ONDANSETRON HYDROCHLORIDE
     Dosage: 1 TAB
     Route: 048
  15. CREON [Concomitant]
     Active Substance: PANCRELIPASE AMYLASE\PANCRELIPASE LIPASE\PANCRELIPASE PROTEASE
     Dosage: 4 CAPSULE
     Route: 048
  16. PROTONIX [Concomitant]
     Active Substance: PANTOPRAZOLE SODIUM
     Dosage: 1 TAB
     Route: 048
  17. PROMETHAZINE [Concomitant]
     Active Substance: PROMETHAZINE HYDROCHLORIDE
     Dosage: 1 TAB
     Route: 048
  18. TOBI PODHALER [Concomitant]
     Active Substance: TOBRAMYCIN
     Dosage: UNK, BID

REACTIONS (2)
  - Exposure during pregnancy [Unknown]
  - Nausea [Unknown]

NARRATIVE: CASE EVENT DATE: 20200101
